FAERS Safety Report 23787083 (Version 1)
Quarter: 2024Q2

REPORT INFORMATION
  Report Type: Spontaneous
  Country: CN (occurrence: CN)
  Receive Date: 20240426
  Receipt Date: 20240426
  Transmission Date: 20240715
  Serious: Yes (Other)
  Sender: FDA-Public Use
  Company Number: None

PATIENT
  Age: 48 Year
  Sex: Female
  Weight: 50 kg

DRUGS (10)
  1. MANNITOL [Suspect]
     Active Substance: MANNITOL
     Indication: Subdural haematoma
     Dosage: 100 ML, TID, DOSAGE FORM: INJECTION
     Route: 041
     Dates: start: 20240404, end: 20240411
  2. MANNITOL [Suspect]
     Active Substance: MANNITOL
     Indication: Intracranial pressure increased
  3. MONOSIALOTETRAHEXOSYLGANGLIOSIDE SODIUM [Suspect]
     Active Substance: MONOSIALOTETRAHEXOSYLGANGLIOSIDE SODIUM
     Indication: Surgery
     Dosage: 100 MG DILUTED IN 100 ML SODIUM CHLORIDE, ONCE DAILY
     Route: 041
     Dates: start: 20240404, end: 20240407
  4. MONOSIALOTETRAHEXOSYLGANGLIOSIDE SODIUM [Suspect]
     Active Substance: MONOSIALOTETRAHEXOSYLGANGLIOSIDE SODIUM
     Dosage: 100 MG IN 100 ML SODIUM CHLORIDE, ONCE DAILY
     Route: 041
     Dates: start: 20240411, end: 20240413
  5. CEFTRIAXONE SODIUM [Suspect]
     Active Substance: CEFTRIAXONE SODIUM
     Indication: Infection prophylaxis
     Dosage: 2 G DILUTED IN 100 ML SODIUM CHLORIDE, ONCE A DAY, DOSAGE FORM: POWDER FOR INJECTION
     Route: 041
     Dates: start: 20240403, end: 20240409
  6. SODIUM CHLORIDE [Suspect]
     Active Substance: SODIUM CHLORIDE
     Indication: Medication dilution
     Dosage: 100 ML IN 2G CEFTRIAXONE SODIUM, ONCE DAILY
     Route: 041
     Dates: start: 20240403, end: 20240409
  7. SODIUM CHLORIDE [Suspect]
     Active Substance: SODIUM CHLORIDE
     Dosage: 100 ML IN 100 MG MONOSIALOTETRAHEXOSYLGANGLIOSIDE SODIUM, ONCE DAILY
     Route: 041
     Dates: start: 20240404, end: 20240407
  8. SODIUM CHLORIDE [Suspect]
     Active Substance: SODIUM CHLORIDE
     Dosage: 100 ML IN 100 MG MONOSIALOTETRAHEXOSYLGANGLIOSIDE SODIUM,ONCE DAILY
     Route: 041
     Dates: start: 20240411, end: 20240413
  9. SODIUM CHLORIDE [Suspect]
     Active Substance: SODIUM CHLORIDE
     Dosage: 250 ML IN 200 MG MAGNESIUM ISOGLYCYRRHIZINATE, ONCE DAILY
     Route: 041
     Dates: start: 20240411
  10. SODIUM CHLORIDE [Suspect]
     Active Substance: SODIUM CHLORIDE
     Dosage: 100 ML IN 1.8 G GLUTATHIONE, ONCE DAILY
     Route: 041
     Dates: start: 20240411

REACTIONS (5)
  - Hepatic function abnormal [Recovering/Resolving]
  - Aspartate aminotransferase increased [Unknown]
  - Alanine aminotransferase increased [Unknown]
  - Subdural haematoma [Unknown]
  - Condition aggravated [Unknown]

NARRATIVE: CASE EVENT DATE: 20240403
